FAERS Safety Report 16409167 (Version 1)
Quarter: 2019Q2

REPORT INFORMATION
  Report Type: Spontaneous
  Country: US (occurrence: US)
  Receive Date: 20190610
  Receipt Date: 20190610
  Transmission Date: 20190711
  Serious: Yes (Other)
  Sender: FDA-Public Use
  Company Number: US-ROCHE-2332793

PATIENT
  Sex: Female

DRUGS (1)
  1. XOLAIR [Suspect]
     Active Substance: OMALIZUMAB
     Indication: PRODUCT USED FOR UNKNOWN INDICATION
     Route: 065
     Dates: start: 20190307

REACTIONS (6)
  - Urticaria [Unknown]
  - Anaphylactic shock [Unknown]
  - Angioedema [Unknown]
  - Influenza [Unknown]
  - Pain [Unknown]
  - Sunburn [Unknown]
